FAERS Safety Report 9686123 (Version 1)
Quarter: 2013Q4

REPORT INFORMATION
  Report Type: Spontaneous
  Country: US (occurrence: US)
  Receive Date: 20131113
  Receipt Date: 20131113
  Transmission Date: 20140711
  Serious: Yes (Hospitalization, Other)
  Sender: FDA-Public Use
  Company Number: PHHY2013US128200

PATIENT
  Sex: Male

DRUGS (2)
  1. CARBAMAZEPINE [Suspect]
     Indication: CONVULSION
  2. QUETIAPINE [Suspect]

REACTIONS (6)
  - Convulsion [Recovered/Resolved]
  - Psychotic disorder [Recovered/Resolved]
  - Cognitive disorder [Unknown]
  - Gait disturbance [Unknown]
  - Aggression [Recovered/Resolved]
  - Drug resistance [Unknown]
